FAERS Safety Report 15399962 (Version 1)
Quarter: 2018Q3

REPORT INFORMATION
  Report Type: Spontaneous
  Country: DE (occurrence: DE)
  Receive Date: 20180919
  Receipt Date: 20180919
  Transmission Date: 20181010
  Serious: Yes (Congenital Anomaly)
  Sender: FDA-Public Use
  Company Number: DE-TEVA-2018-DE-955885

PATIENT
  Age: 1 Day
  Sex: Male
  Weight: 4.03 kg

DRUGS (9)
  1. LEMTRADA [Concomitant]
     Active Substance: ALEMTUZUMAB
     Indication: MULTIPLE SCLEROSIS
     Route: 064
  2. ZINKSALZE [Concomitant]
     Indication: HERPES ZOSTER
     Route: 064
     Dates: start: 20180110, end: 20180112
  3. L?THYROXIN [Concomitant]
     Active Substance: LEVOTHYROXINE SODIUM
     Indication: AUTOIMMUNE THYROIDITIS
     Dosage: 100 [?G/D (BIS 50) ]
     Route: 064
     Dates: start: 20170618, end: 20180315
  4. DOXYLAMINE [Suspect]
     Active Substance: DOXYLAMINE
     Indication: SLEEP DISORDER
     Dosage: 45 [MG/D ]/ 15 ? 45 MG/D
     Route: 064
     Dates: start: 20170731, end: 20180215
  5. FEMIBION [Concomitant]
     Active Substance: VITAMINS
     Indication: PROPHYLAXIS OF NEURAL TUBE DEFECT
     Route: 064
     Dates: start: 20170616, end: 20170731
  6. AMITRIPTYLIN [Suspect]
     Active Substance: AMITRIPTYLINE
     Indication: SLEEP DISORDER
     Dosage: 12.5 MILLIGRAM DAILY; 12.5 [MG/D ]
     Route: 064
     Dates: start: 20170721, end: 20170731
  7. ZOLPIDEM [Suspect]
     Active Substance: ZOLPIDEM\ZOLPIDEM TARTRATE
     Indication: SLEEP DISORDER
     Dosage: 10 [MG/D (BIS 5) ]
     Route: 064
     Dates: start: 20170616, end: 20170727
  8. DRONABINOL. [Concomitant]
     Active Substance: DRONABINOL
     Indication: PAIN
     Route: 064
     Dates: start: 20170616, end: 20170719
  9. TANNOLACT CREME [Concomitant]
     Indication: HERPES ZOSTER
     Route: 064
     Dates: start: 20180110, end: 20180112

REACTIONS (2)
  - Large for dates baby [Unknown]
  - Ventricular septal defect [Unknown]

NARRATIVE: CASE EVENT DATE: 20180315
